FAERS Safety Report 7823978-2 (Version None)
Quarter: 2011Q4

REPORT INFORMATION
  Report Type: 
  Country: None (occurrence: None)
  Receive Date: 20111019
  Receipt Date: 20111013
  Transmission Date: 20120403
  Serious: Yes (Other)
  Sender: FDA-Public Use
  Company Number: IN-PFIZER INC-2011246300

PATIENT
  Age: 2 Year
  Sex: Female

DRUGS (1)
  1. PIPERACILLIN AND TAZOBACTAM [Suspect]
     Dosage: 300 MG/KG, DAILY
     Route: 042

REACTIONS (3)
  - BRADYCARDIA [None]
  - HYPOKALAEMIA [None]
  - METABOLIC ALKALOSIS [None]
